FAERS Safety Report 9912144 (Version 1)
Quarter: 2014Q1

REPORT INFORMATION
  Report Type: Spontaneous
  Country: CA (occurrence: CA)
  Receive Date: 20140220
  Receipt Date: 20140220
  Transmission Date: 20141002
  Serious: Yes (Other)
  Sender: FDA-Public Use
  Company Number: CA-BRISTOL-MYERS SQUIBB COMPANY-20148607

PATIENT
  Age: 69 Year
  Sex: Female
  Weight: 91 kg

DRUGS (1)
  1. COUMADIN [Suspect]
     Indication: ATRIAL FIBRILLATION
     Dosage: LOT 5MG# 2F69855A  EXP:AUG2014?LOT  2MG #2H63512B EXP:NOV2014?LOT 1MG# 2D71819C EXP:JUN 2014

REACTIONS (1)
  - Arthralgia [Unknown]
